FAERS Safety Report 15187116 (Version 1)
Quarter: 2018Q3

REPORT INFORMATION
  Report Type: Report from Study
  Country: US (occurrence: US)
  Receive Date: 20180723
  Receipt Date: 20180723
  Transmission Date: 20181010
  Serious: No
  Sender: FDA-Public Use
  Company Number: US-EXELIXIS-CABO-18012472

PATIENT
  Sex: Male

DRUGS (1)
  1. COMETRIQ [Suspect]
     Active Substance: CABOZANTINIB S-MALATE
     Indication: THYROID CANCER
     Dosage: 140 MG, QD (1 80 MG CAPSULE AND 3 20 MG CAPSULE)
     Route: 048
     Dates: start: 201604

REACTIONS (2)
  - Impaired healing [Unknown]
  - Diarrhoea [Not Recovered/Not Resolved]
